FAERS Safety Report 4487596-9 (Version None)
Quarter: 2004Q4

REPORT INFORMATION
  Report Type: 
  Country: None (occurrence: None)
  Receive Date: 20041027
  Receipt Date: 20041027
  Transmission Date: 20050328
  Serious: Yes (Disabling)
  Sender: FDA-Public Use
  Company Number: None

PATIENT
  Sex: Male
  Weight: 74.8435 kg

DRUGS (1)
  1. AVELOX [Suspect]
     Indication: VIRAL INFECTION
     Dosage: 400 MG
     Dates: start: 20040917, end: 20041005

REACTIONS (1)
  - HEPATITIS CHOLESTATIC [None]
